FAERS Safety Report 16792731 (Version 2)
Quarter: 2019Q3

REPORT INFORMATION
  Report Type: Spontaneous
  Country: NL (occurrence: NL)
  Receive Date: 20190910
  Receipt Date: 20190924
  Transmission Date: 20191005
  Serious: Yes (Death, Hospitalization)
  Sender: FDA-Public Use
  Company Number: PHHY2019NL209521

PATIENT
  Age: 52 Year
  Sex: Female

DRUGS (3)
  1. CARBOPLATIN. [Suspect]
     Active Substance: CARBOPLATIN
     Indication: OVARIAN CANCER
     Dosage: UNK
     Route: 065
     Dates: start: 2010
  2. PACLITAXEL. [Suspect]
     Active Substance: PACLITAXEL
     Indication: OVARIAN CANCER
     Dosage: UNK
     Route: 065
     Dates: start: 2010
  3. BEVACIZUMAB. [Concomitant]
     Active Substance: BEVACIZUMAB
     Indication: OVARIAN CANCER
     Route: 065

REACTIONS (8)
  - Haemolytic anaemia [Fatal]
  - Pyrexia [Fatal]
  - Tremor [Fatal]
  - Pulmonary embolism [Fatal]
  - Chromaturia [Fatal]
  - Malignant neoplasm progression [Fatal]
  - Paraesthesia [Fatal]
  - Metastases to peritoneum [Fatal]

NARRATIVE: CASE EVENT DATE: 2014
